FAERS Safety Report 6635913-3 (Version None)
Quarter: 2010Q1

REPORT INFORMATION
  Report Type: 
  Country: None (occurrence: None)
  Receive Date: 20100316
  Receipt Date: 20100302
  Transmission Date: 20100710
  Serious: Yes (Other)
  Sender: FDA-Public Use
  Company Number: US-CELGENEUS-163-21880-10030345

PATIENT
  Sex: Female

DRUGS (1)
  1. REVLIMID [Suspect]
     Route: 048
     Dates: start: 20071128

REACTIONS (7)
  - BLOOD POTASSIUM DECREASED [None]
  - BLOOD PRESSURE INCREASED [None]
  - FLANK PAIN [None]
  - HERPES ZOSTER [None]
  - MUSCLE SPASMS [None]
  - RENAL DISORDER [None]
  - ULCERATIVE KERATITIS [None]
